FAERS Safety Report 23828280 (Version 2)
Quarter: 2024Q2

REPORT INFORMATION
  Report Type: Spontaneous
  Country: US (occurrence: US)
  Receive Date: 20240508
  Receipt Date: 20240516
  Transmission Date: 20240715
  Serious: No
  Sender: FDA-Public Use
  Company Number: US-BRISTOL-MYERS SQUIBB COMPANY-2024-069399

PATIENT
  Age: 76 Year
  Sex: Female

DRUGS (1)
  1. LENALIDOMIDE [Suspect]
     Active Substance: LENALIDOMIDE
     Indication: Plasma cell myeloma in remission
     Route: 048

REACTIONS (7)
  - Fatigue [Not Recovered/Not Resolved]
  - Hypersensitivity [Not Recovered/Not Resolved]
  - Arthritis [Not Recovered/Not Resolved]
  - Intentional dose omission [Not Recovered/Not Resolved]
  - White blood cell count decreased [Unknown]
  - Diarrhoea [Unknown]
  - Off label use [Unknown]
